FAERS Safety Report 23601209 (Version 2)
Quarter: 2024Q1

REPORT INFORMATION
  Report Type: Spontaneous
  Country: US (occurrence: US)
  Receive Date: 20240306
  Receipt Date: 20240320
  Transmission Date: 20240409
  Serious: No
  Sender: FDA-Public Use
  Company Number: US-Calliditas-2024CAL00309

PATIENT
  Age: 39 Year
  Sex: Female
  Weight: 109 kg

DRUGS (4)
  1. TARPEYO [Suspect]
     Active Substance: BUDESONIDE
     Indication: IgA nephropathy
     Dosage: 16 MG (4 MG CAPSULES) ONCE DAILY
     Route: 048
     Dates: start: 20240207
  2. LOSARTAN [Concomitant]
     Active Substance: LOSARTAN
  3. VITAMINS [Concomitant]
     Active Substance: VITAMINS
  4. FISH OIL [Concomitant]
     Active Substance: FISH OIL

REACTIONS (4)
  - Nausea [Recovered/Resolved]
  - Vomiting [Recovered/Resolved]
  - Product residue present [Unknown]
  - Headache [Unknown]

NARRATIVE: CASE EVENT DATE: 20240211
